FAERS Safety Report 25603124 (Version 2)
Quarter: 2025Q3

REPORT INFORMATION
  Report Type: Spontaneous
  Country: RU (occurrence: RU)
  Receive Date: 20250724
  Receipt Date: 20250730
  Transmission Date: 20251020
  Serious: Yes (Other)
  Sender: MERCK SHARP & DOHME LLC
  Company Number: RU-009507513-2309946

PATIENT
  Age: 68 Year
  Sex: Male

DRUGS (3)
  1. PEMBROLIZUMAB [Suspect]
     Active Substance: PEMBROLIZUMAB
     Indication: Squamous cell carcinoma of pharynx
     Dosage: 200 MG ON DAY 1
     Route: 042
     Dates: start: 202406, end: 202412
  2. CARBOPLATIN [Suspect]
     Active Substance: CARBOPLATIN
     Indication: Squamous cell carcinoma of pharynx
     Dosage: AUC 5 INTRAVENOUSLY ON DAY 1, CYCLE 21 DAYS, TOTAL 6 CYCLES.
     Route: 042
     Dates: start: 202406, end: 202412
  3. FLUOROURACIL [Suspect]
     Active Substance: FLUOROURACIL
     Indication: Squamous cell carcinoma of pharynx
     Dosage: 1000 MG/M2 (750-800 MG/M2 PER DAY) (120-HOUR INFUSION) ON DAYS 1-5 (ALSO REPORTED AS ON DAYS 1-4)...
     Dates: start: 202406, end: 202412

REACTIONS (4)
  - Thrombocytopenia [Recovered/Resolved with Sequelae]
  - Anaemia [Recovered/Resolved with Sequelae]
  - Product use in unapproved indication [Unknown]
  - Therapeutic product effective for unapproved indication [Unknown]

NARRATIVE: CASE EVENT DATE: 20240601
